FAERS Safety Report 8424427-6 (Version None)
Quarter: 2012Q2

REPORT INFORMATION
  Report Type: 
  Country: None (occurrence: None)
  Receive Date: 20120608
  Receipt Date: 20110928
  Transmission Date: 20120825
  Serious: No
  Sender: FDA-Public Use
  Company Number: US-ASTRAZENECA-2011SE58420

PATIENT
  Age: 79 Year
  Sex: Female
  Weight: 65.8 kg

DRUGS (2)
  1. ALBUTEROL [Concomitant]
  2. PULMICORT FLEXHALER [Suspect]
     Indication: ASTHMA
     Route: 055
     Dates: start: 20100101

REACTIONS (2)
  - ECZEMA [None]
  - BREAST PAIN [None]
